FAERS Safety Report 10075402 (Version 1)
Quarter: 2014Q2

REPORT INFORMATION
  Report Type: Spontaneous
  Country: US (occurrence: US)
  Receive Date: 20140414
  Receipt Date: 20140414
  Transmission Date: 20141212
  Serious: Yes (Other)
  Sender: FDA-Public Use
  Company Number: US-ROCHE-1375023

PATIENT
  Age: 66 Year
  Sex: Female

DRUGS (1)
  1. VALCYTE [Suspect]
     Indication: CYTOMEGALOVIRUS INFECTION
     Route: 048

REACTIONS (3)
  - Basal cell carcinoma [Not Recovered/Not Resolved]
  - Pneumonia [Recovered/Resolved]
  - White blood cell count decreased [Recovered/Resolved]
